FAERS Safety Report 17494289 (Version 1)
Quarter: 2020Q1

REPORT INFORMATION
  Report Type: Spontaneous
  Country: US (occurrence: US)
  Receive Date: 20200304
  Receipt Date: 20200304
  Transmission Date: 20200409
  Serious: No
  Sender: FDA-Public Use
  Company Number: US-SUN PHARMACEUTICAL INDUSTRIES LTD-2019R1-218851

PATIENT
  Sex: Male

DRUGS (1)
  1. ODOMZO [Suspect]
     Active Substance: SONIDEGIB
     Indication: BASAL CELL CARCINOMA
     Dosage: UNK
     Route: 065

REACTIONS (5)
  - Blood potassium decreased [Unknown]
  - Blood iron decreased [Unknown]
  - Muscular weakness [Unknown]
  - Gait disturbance [Unknown]
  - Diarrhoea [Not Recovered/Not Resolved]
